FAERS Safety Report 8022126-6 (Version None)
Quarter: 2012Q1

REPORT INFORMATION
  Report Type: 
  Country: None (occurrence: None)
  Receive Date: 20120104
  Receipt Date: 20120103
  Transmission Date: 20120608
  Serious: No
  Sender: FDA-Public Use
  Company Number: US-PFIZER INC-2008026560

PATIENT
  Sex: Male
  Weight: 86.18 kg

DRUGS (11)
  1. TRIAMTERENE [Interacting]
  2. ACTOS [Concomitant]
     Indication: BLOOD GLUCOSE INCREASED
  3. LASIX [Concomitant]
  4. AZULFIDINE [Concomitant]
     Indication: ARTHRITIS
  5. HYDRALAZINE HCL [Concomitant]
     Indication: HYPERTENSION
  6. TIKOSYN [Suspect]
     Indication: HEART RATE IRREGULAR
     Dosage: 0.25 MG, 2X/DAY
     Route: 048
     Dates: start: 20070201
  7. HYDROCHLOROTHIAZIDE [Interacting]
  8. COZAAR [Concomitant]
  9. WARFARIN SODIUM [Concomitant]
  10. TIKOSYN [Interacting]
     Indication: CARDIAC PACEMAKER INSERTION
     Dosage: UNK
  11. NORVASC [Concomitant]
     Indication: HYPERTENSION
     Dates: start: 20080101

REACTIONS (2)
  - BLOOD PRESSURE FLUCTUATION [None]
  - LABELLED DRUG-DRUG INTERACTION MEDICATION ERROR [None]
